FAERS Safety Report 7010815-1 (Version None)
Quarter: 2010Q3

REPORT INFORMATION
  Report Type: 
  Country: None (occurrence: None)
  Receive Date: 20100923
  Receipt Date: 20100923
  Transmission Date: 20110219
  Serious: Yes (Other)
  Sender: FDA-Public Use
  Company Number: None

PATIENT
  Age: 28 Year
  Sex: Male
  Weight: 75.7507 kg

DRUGS (2)
  1. CIPRO [Suspect]
     Indication: STAPHYLOCOCCAL INFECTION
     Dosage: 500 MG 2 X A DAY PO
     Route: 048
     Dates: start: 20100411, end: 20100414
  2. XANAX [Concomitant]

REACTIONS (7)
  - ANXIETY [None]
  - ARRHYTHMIA [None]
  - BACK PAIN [None]
  - COUGH [None]
  - FEELING ABNORMAL [None]
  - PALPITATIONS [None]
  - PANIC ATTACK [None]
